FAERS Safety Report 11989411 (Version 2)
Quarter: 2016Q1

REPORT INFORMATION
  Report Type: Spontaneous
  Country: FR (occurrence: FR)
  Receive Date: 20160202
  Receipt Date: 20160212
  Transmission Date: 20160526
  Serious: Yes (Other)
  Sender: FDA-Public Use
  Company Number: FR-BAYER-2016-018083

PATIENT
  Age: 41 Year
  Sex: Female

DRUGS (2)
  1. OGASTRO [Concomitant]
     Dosage: UNK
  2. JAYDESS [Suspect]
     Active Substance: LEVONORGESTREL
     Indication: CONTRACEPTION
     Dosage: 14 MCG/24HR, CONT
     Route: 015
     Dates: start: 20151024, end: 20151218

REACTIONS (6)
  - Menstrual disorder [Recovered/Resolved]
  - Weight decreased [Not Recovered/Not Resolved]
  - Asthenia [Not Recovered/Not Resolved]
  - Abdominal pain [Not Recovered/Not Resolved]
  - Back pain [Not Recovered/Not Resolved]
  - Jaundice hepatocellular [Recovering/Resolving]

NARRATIVE: CASE EVENT DATE: 20151024
